FAERS Safety Report 15400276 (Version 1)
Quarter: 2018Q3

REPORT INFORMATION
  Report Type: Spontaneous
  Country: NO (occurrence: NO)
  Receive Date: 20180919
  Receipt Date: 20180919
  Transmission Date: 20181010
  Serious: Yes (Other)
  Sender: FDA-Public Use
  Company Number: NO-ABBVIE-18K-122-2488314-00

PATIENT
  Age: 69 Year
  Sex: Female

DRUGS (1)
  1. HUMIRA [Suspect]
     Active Substance: ADALIMUMAB
     Indication: PRODUCT USED FOR UNKNOWN INDICATION
     Dosage: NORMAL DOSE
     Route: 058
     Dates: start: 2011

REACTIONS (4)
  - Small intestine adenocarcinoma [Unknown]
  - Diarrhoea [Unknown]
  - Gastrointestinal lymphoma [Unknown]
  - Pain [Unknown]
